FAERS Safety Report 8201073 (Version 3)
Quarter: 2013Q2

REPORT INFORMATION
  Report Type: Report from Study
  Country: JP (occurrence: JP)
  Receive Date: 20111026
  Receipt Date: 20130508
  Transmission Date: 20140414
  Serious: Yes (Hospitalization, Other)
  Sender: FDA-Public Use
  Company Number: JP-NOVOPROD-336959

PATIENT
  Age: 73 Year
  Sex: Male
  Weight: 49 kg

DRUGS (9)
  1. NORDITROPIN NORDIFLEX 3.3 MG/ML [Suspect]
     Indication: GROWTH HORMONE DEFICIENCY
     Dosage: 0.1 MG, QD
     Route: 058
     Dates: start: 20100608
  2. METHYCOBAL [Concomitant]
     Indication: VISUAL IMPAIRMENT
     Dosage: 1500 ?G, QD
     Route: 048
  3. MUCOSTA [Concomitant]
     Indication: GASTRITIS
     Dosage: 300 MG, QD
     Route: 048
  4. GASTER D [Concomitant]
     Indication: GASTRITIS
     Dosage: 10 MG, QD
     Route: 048
  5. ONEALFA [Concomitant]
     Indication: OSTEOPOROSIS
     Dosage: 0.5 ?G, QD
     Route: 048
  6. BLOPRESS [Concomitant]
     Indication: HYPERTENSION
     Dosage: 4 MG, QD
     Route: 048
  7. NORVASC [Concomitant]
     Indication: HYPERTENSION
     Dosage: 2.5 MG, QD
     Route: 048
  8. DEPAS [Concomitant]
     Indication: HEADACHE
     Dosage: 1 MG, QD
     Route: 048
  9. LOXONIN [Concomitant]
     Indication: HEADACHE
     Dosage: 60 MG, QD
     Route: 048

REACTIONS (2)
  - Pituitary tumour benign [Recovered/Resolved with Sequelae]
  - Neoplasm [Recovered/Resolved with Sequelae]
